FAERS Safety Report 20250318 (Version 1)
Quarter: 2021Q4

REPORT INFORMATION
  Report Type: Spontaneous
  Country: CA (occurrence: CA)
  Receive Date: 20211229
  Receipt Date: 20211229
  Transmission Date: 20220303
  Serious: Yes (Other)
  Sender: FDA-Public Use
  Company Number: CA-SCALL-2021-CA-001919

PATIENT
  Age: 57 Year
  Sex: Male

DRUGS (1)
  1. RABEPRAZOLE SODIUM [Suspect]
     Active Substance: RABEPRAZOLE SODIUM
     Indication: Gastrooesophageal reflux disease
     Dosage: 1 DF, DAILY
     Route: 048

REACTIONS (8)
  - Dehydration [Recovered/Resolved]
  - Inflammation [Recovered/Resolved]
  - Insomnia [Recovered/Resolved]
  - Renal impairment [Recovered/Resolved]
  - Renal pain [Recovered/Resolved]
  - Urethritis [Recovered/Resolved]
  - Urine output increased [Recovered/Resolved]
  - Myalgia [Recovered/Resolved]
